FAERS Safety Report 24997113 (Version 1)
Quarter: 2025Q1

REPORT INFORMATION
  Report Type: Spontaneous
  Country: CH (occurrence: CH)
  Receive Date: 20250221
  Receipt Date: 20250221
  Transmission Date: 20250409
  Serious: Yes (Other)
  Sender: VERTEX
  Company Number: CH-VERTEX PHARMACEUTICALS-2025-002728

PATIENT
  Age: 30 Year

DRUGS (1)
  1. TRIKAFTA [Suspect]
     Active Substance: ELEXACAFTOR\IVACAFTOR\TEZACAFTOR
     Indication: Cystic fibrosis
     Route: 048
     Dates: start: 20230131, end: 20240313

REACTIONS (2)
  - Gastrointestinal disorder [Recovered/Resolved]
  - Off label use [Unknown]
